FAERS Safety Report 7602640-5 (Version None)
Quarter: 2011Q3

REPORT INFORMATION
  Report Type: 
  Country: None (occurrence: None)
  Receive Date: 20110712
  Receipt Date: 20110630
  Transmission Date: 20111222
  Serious: Yes (Other)
  Sender: FDA-Public Use
  Company Number: KZ-ELI_LILLY_AND_COMPANY-KZ201104001240

PATIENT
  Age: 21 Year
  Sex: Female

DRUGS (3)
  1. SENORM [Concomitant]
     Dosage: UNK
     Route: 042
  2. ZYPREXA [Suspect]
     Dosage: UNK UNK, DAILY (1/D)
     Route: 042
  3. AMINAZIN [Concomitant]
     Indication: CARDIAC FIBRILLATION
     Dosage: 250 MG, UNK

REACTIONS (5)
  - DECUBITUS ULCER [None]
  - INCORRECT ROUTE OF DRUG ADMINISTRATION [None]
  - BLOOD ALBUMIN DECREASED [None]
  - OVERDOSE [None]
  - PNEUMONIA [None]
